FAERS Safety Report 6395363-4 (Version None)
Quarter: 2009Q4

REPORT INFORMATION
  Report Type: 
  Country: None (occurrence: None)
  Receive Date: 20091006
  Receipt Date: 20090922
  Transmission Date: 20100525
  Serious: Yes (Hospitalization)
  Sender: FDA-Public Use
  Company Number: 231141J09USA

PATIENT
  Age: 52 Year
  Sex: Female
  Weight: 61 kg

DRUGS (4)
  1. REBIF [Suspect]
     Indication: MULTIPLE SCLEROSIS
     Dosage: 44 MCG, 3 IN 1 WEEKS, SUBCUTANEOUS
     Route: 058
     Dates: start: 20090319
  2. TYLENOL PM (TYLENOL PM) [Suspect]
     Indication: PAIN
     Dosage: 4 DOSAGE FORMS
     Dates: start: 20090907, end: 20090907
  3. ALEVE [Concomitant]
  4. CYMBALTA [Concomitant]

REACTIONS (3)
  - HYPOPHAGIA [None]
  - LIVER FUNCTION TEST ABNORMAL [None]
  - LOSS OF CONSCIOUSNESS [None]
